FAERS Safety Report 10241536 (Version 2)
Quarter: 2014Q2

REPORT INFORMATION
  Report Type: Spontaneous
  Country: US (occurrence: US)
  Receive Date: 20140617
  Receipt Date: 20140617
  Transmission Date: 20141212
  Serious: Yes (Hospitalization, Disabling, Other)
  Sender: FDA-Public Use
  Company Number: US-009507513-2011SP023177

PATIENT
  Sex: Female
  Weight: 88 kg

DRUGS (1)
  1. NUVARING [Suspect]
     Indication: CONTRACEPTION
     Route: 067
     Dates: start: 20080424, end: 20090522

REACTIONS (5)
  - Antiphospholipid syndrome [Unknown]
  - Pulmonary embolism [Recovered/Resolved]
  - Mental disorder [Unknown]
  - Emotional disorder [Unknown]
  - Pain in extremity [Unknown]
